FAERS Safety Report 23521648 (Version 1)
Quarter: 2024Q1

REPORT INFORMATION
  Report Type: Spontaneous
  Country: US (occurrence: None)
  Receive Date: 20240213
  Receipt Date: 20240213
  Transmission Date: 20240409
  Serious: Yes (Hospitalization)
  Sender: FDA-Public Use
  Company Number: None

PATIENT
  Sex: Female

DRUGS (1)
  1. ACTEMRA [Suspect]
     Active Substance: TOCILIZUMAB
     Indication: Rheumatoid arthritis
     Dosage: 162 MG/0.9ML SUBCUTANEOUS??INJECT 162 MG UNDER THE SKIN (SUBCUTANEOUS INJECTION) EVERY WEEK
     Route: 058
     Dates: start: 20230627

REACTIONS (2)
  - Infection [None]
  - Therapy interrupted [None]
